FAERS Safety Report 5213332-4 (Version None)
Quarter: 2007Q1

REPORT INFORMATION
  Report Type: 
  Country: None (occurrence: None)
  Receive Date: 20070119
  Receipt Date: 20060405
  Transmission Date: 20070707
  Serious: No
  Sender: FDA-Public Use
  Company Number: US-GLAXOSMITHKLINE-A0600544A

PATIENT
  Age: 57 Year
  Sex: Female

DRUGS (3)
  1. ARIXTRA [Suspect]
     Dosage: 2.5MG PER DAY
     Route: 058
     Dates: start: 20060328, end: 20060403
  2. PERCOCET [Concomitant]
  3. PREDNISONE [Concomitant]

REACTIONS (4)
  - BURNING SENSATION [None]
  - GROIN PAIN [None]
  - URINE OUTPUT DECREASED [None]
  - VISION BLURRED [None]
